FAERS Safety Report 12749939 (Version 2)
Quarter: 2016Q3

REPORT INFORMATION
  Report Type: Report from Study
  Country: US (occurrence: US)
  Receive Date: 20160915
  Receipt Date: 20160926
  Transmission Date: 20161109
  Serious: Yes (Hospitalization)
  Sender: FDA-Public Use
  Company Number: US-ACTELION-A-US2016-142234

PATIENT
  Age: 23 Year
  Sex: Male

DRUGS (1)
  1. OPSUMIT [Suspect]
     Active Substance: MACITENTAN
     Indication: PULMONARY HYPERTENSION
     Dosage: 10 MG, QD
     Route: 048
     Dates: start: 20151117

REACTIONS (3)
  - Haematochezia [Recovered/Resolved]
  - Haematemesis [Recovered/Resolved]
  - Diarrhoea haemorrhagic [Recovered/Resolved]
